FAERS Safety Report 5263884-3 (Version None)
Quarter: 2007Q1

REPORT INFORMATION
  Report Type: 
  Country: None (occurrence: None)
  Receive Date: 20070313
  Receipt Date: 20070313
  Transmission Date: 20070707
  Serious: Yes (Hospitalization)
  Sender: FDA-Public Use
  Company Number: GB-BRISTOL-MYERS SQUIBB COMPANY-13707260

PATIENT
  Age: 41 Year
  Sex: Female
  Weight: 77 kg

DRUGS (6)
  1. PACLITAXEL [Suspect]
     Indication: OVARIAN CANCER
     Route: 042
     Dates: start: 20061103, end: 20061103
  2. CARBOPLATIN [Suspect]
     Indication: OVARIAN CANCER
     Route: 042
     Dates: start: 20061103, end: 20061103
  3. TEMAZEPAM [Concomitant]
     Dates: start: 20060101
  4. ACETAMINOPHEN [Concomitant]
     Dates: start: 20061103
  5. PROZAC [Concomitant]
     Dates: start: 20040101
  6. MOVICOLON [Concomitant]
     Dates: start: 20061004

REACTIONS (1)
  - DEHYDRATION [None]
